FAERS Safety Report 6657110-8 (Version None)
Quarter: 2010Q1

REPORT INFORMATION
  Report Type: 
  Country: None (occurrence: None)
  Receive Date: 20100330
  Receipt Date: 20100319
  Transmission Date: 20100710
  Serious: Yes (Other)
  Sender: FDA-Public Use
  Company Number: US-JNJFOC-20100306779

PATIENT
  Sex: Male
  Weight: 104.33 kg

DRUGS (5)
  1. FENTANYL-100 [Suspect]
     Indication: NERVE INJURY
     Route: 062
  2. FENTANYL-100 [Suspect]
     Route: 062
  3. HYDROMORPHONE HCL [Concomitant]
     Indication: BREAKTHROUGH PAIN
     Route: 048
  4. LYRICA [Concomitant]
     Indication: NEURALGIA
     Route: 048
  5. XANAX [Concomitant]
     Indication: VOMITING
     Route: 048

REACTIONS (7)
  - APPLICATION SITE PRURITUS [None]
  - DRUG ADMINISTERED AT INAPPROPRIATE SITE [None]
  - DRUG INEFFECTIVE [None]
  - HEAD AND NECK CANCER [None]
  - MALAISE [None]
  - PRODUCT QUALITY ISSUE [None]
  - WRONG TECHNIQUE IN DRUG USAGE PROCESS [None]
